FAERS Safety Report 9065369 (Version 2)
Quarter: 2013Q2

REPORT INFORMATION
  Report Type: Spontaneous
  Country: US (occurrence: US)
  Receive Date: 20130130
  Receipt Date: 20130507
  Transmission Date: 20140414
  Serious: Yes (Other)
  Sender: FDA-Public Use
  Company Number: CHPA2013US001673

PATIENT
  Age: 68 Year
  Sex: Female

DRUGS (1)
  1. MAALOX UNKNOWN [Suspect]
     Indication: ABDOMINAL DISCOMFORT
     Dosage: 3 TSP, BID
     Route: 048

REACTIONS (6)
  - Uterine cancer [Recovered/Resolved]
  - Haemorrhage [Recovered/Resolved]
  - Off label use [Unknown]
  - Exposure during pregnancy [Unknown]
  - Expired drug administered [Unknown]
  - Incorrect dose administered [Unknown]
